FAERS Safety Report 5108600-0 (Version None)
Quarter: 2006Q3

REPORT INFORMATION
  Report Type: 
  Country: None (occurrence: None)
  Receive Date: 20060915
  Receipt Date: 20060905
  Transmission Date: 20061208
  Serious: Yes (Hospitalization)
  Sender: FDA-Public Use
  Company Number: 229514

PATIENT
  Age: 84 Year
  Sex: Female

DRUGS (22)
  1. RITUXAN [Suspect]
     Indication: NON-HODGKIN'S LYMPHOMA
     Dosage: 580 MG, INTRAVENOUS
     Route: 042
     Dates: start: 20060123
  2. DOXORUBICIN HYDROCHLORIDE [Suspect]
     Indication: NON-HODGKIN'S LYMPHOMA
     Dosage: 77 MG, INTRAVENOUS
     Route: 042
     Dates: start: 20060130
  3. CYCLOPHOSPHAMIDE [Suspect]
     Indication: NON-HODGKIN'S LYMPHOMA
     Dosage: 1150 MG, INTRAVENOUS
     Route: 042
     Dates: start: 20060130
  4. ONCOVIN [Suspect]
     Indication: NON-HODGKIN'S LYMPHOMA
     Dosage: 2 MG, INTRAVENOUS
     Route: 042
     Dates: start: 20060130
  5. PREDNISOLONE [Suspect]
     Indication: NON-HODGKIN'S LYMPHOMA
     Dosage: 100 MG, ORAL
     Route: 048
  6. POLARAMINE [Concomitant]
  7. NEUTROGEN (LENOGRASTIM) [Concomitant]
  8. ZANTAC [Concomitant]
  9. SULFAMETHOXAZOLE + TRIMETHOPRIM [Concomitant]
  10. SOLANAX (ALPROZOLAM) [Concomitant]
  11. PRIMPERAN ELIXIR [Concomitant]
  12. KYTRIL [Concomitant]
  13. ZOFRAN [Concomitant]
  14. NAUZELIN (DOMPERIDONE) [Concomitant]
  15. AMOBAN (ZOPICLONE) [Concomitant]
  16. MERISLON (BETAHISTINE MESYLATE) [Concomitant]
  17. LOXONIN (LOXOPROFEN SODIUM) [Concomitant]
  18. PL GRANULES (ACETAMINOPHEN, CAFFEINE, PROMETHAZINE METHYLENE DISALICYL [Concomitant]
  19. CIPROFLOXACIN [Concomitant]
  20. MAGNESIUM OXIDE (MAGNESIUM OXIDE) [Concomitant]
  21. LAXOBERON (SODIUM PICOSULFATE) [Concomitant]
  22. PURSENNID (SENNOSIDES) [Concomitant]

REACTIONS (2)
  - NEUTROPENIA [None]
  - RHINITIS [None]
